FAERS Safety Report 12422964 (Version 1)
Quarter: 2016Q2

REPORT INFORMATION
  Report Type: Spontaneous
  Country: US (occurrence: None)
  Receive Date: 20160531
  Receipt Date: 20160531
  Transmission Date: 20160815
  Serious: No
  Sender: FDA-Public Use
  Company Number: None

PATIENT
  Age: 48 Year
  Sex: Male
  Weight: 82.56 kg

DRUGS (7)
  1. YOUNGEVITY TT2.0 (VITAMINS AND MINERALS) [Concomitant]
  2. DNA FORCE (COQ10) [Concomitant]
  3. ASPIRIN. [Concomitant]
     Active Substance: ASPIRIN
  4. OSTEO FX (MINERALS MAINLY CALCIUM) [Concomitant]
  5. ATORVASTATIN, 40 MG GREENSTONE LLC [Suspect]
     Active Substance: ATORVASTATIN
     Indication: MYOCARDIAL INFARCTION
     Route: 048
     Dates: start: 20150902
  6. BRINLINTA [Concomitant]
  7. EFA PLUS (FISH OIL) [Concomitant]

REACTIONS (7)
  - Musculoskeletal pain [None]
  - Weight decreased [None]
  - Memory impairment [None]
  - Myalgia [None]
  - Arthralgia [None]
  - Muscle spasms [None]
  - Disturbance in attention [None]

NARRATIVE: CASE EVENT DATE: 20151023
